FAERS Safety Report 25760994 (Version 1)
Quarter: 2025Q3

REPORT INFORMATION
  Report Type: Spontaneous
  Country: US (occurrence: US)
  Receive Date: 20250904
  Receipt Date: 20250904
  Transmission Date: 20251021
  Serious: Yes (Death)
  Sender: MERCK SHARP & DOHME LLC
  Company Number: US-009507513-2324104

PATIENT
  Age: 81 Year
  Sex: Female
  Weight: 72 kg

DRUGS (2)
  1. BRIDION [Suspect]
     Active Substance: SUGAMMADEX SODIUM
     Route: 065
     Dates: start: 20250714
  2. ROCURONIUM [Suspect]
     Active Substance: ROCURONIUM BROMIDE
     Route: 065
     Dates: start: 20250714

REACTIONS (3)
  - Bradycardia [Fatal]
  - Hypotension [Unknown]
  - Dose calculation error [Unknown]

NARRATIVE: CASE EVENT DATE: 20250714
